FAERS Safety Report 7212964-1 (Version None)
Quarter: 2011Q1

REPORT INFORMATION
  Report Type: 
  Country: None (occurrence: None)
  Receive Date: 20110106
  Receipt Date: 20101216
  Transmission Date: 20110831
  Serious: Yes (Congenital Anomaly)
  Sender: FDA-Public Use
  Company Number: A0699214A

PATIENT
  Sex: Male
  Weight: 2.4 kg

DRUGS (10)
  1. PAXIL [Suspect]
     Indication: DEPRESSION
     Dates: start: 20000101, end: 20040101
  2. BETAMETHASONE [Concomitant]
     Dates: start: 20030601
  3. VITAMIN TAB [Concomitant]
  4. MAGNESIUM SULFATE [Concomitant]
     Dates: start: 20030601
  5. TERBUTALINE SULFATE [Concomitant]
     Dates: start: 20030601
  6. AMPICILLIN [Concomitant]
     Dates: start: 20030601
  7. WELLBUTRIN [Concomitant]
     Dates: start: 20000101, end: 20040101
  8. PAXIL CR [Suspect]
     Indication: DEPRESSION
     Dosage: 25MG IN THE MORNING
     Dates: start: 20021009
  9. AMPICILLIN [Concomitant]
     Dates: start: 20030601
  10. ZOFRAN [Concomitant]

REACTIONS (10)
  - PREMATURE BABY [None]
  - ATRIOVENTRICULAR SEPTAL DEFECT [None]
  - VENTRICULAR SEPTAL DEFECT [None]
  - PERICARDITIS [None]
  - TRICUSPID VALVE INCOMPETENCE [None]
  - ATRIAL SEPTAL DEFECT [None]
  - CONGENITAL MITRAL VALVE INCOMPETENCE [None]
  - MITRAL VALVE DISEASE [None]
  - MULTIPLE CONGENITAL ABNORMALITIES [None]
  - DRUG EXPOSURE DURING PREGNANCY [None]
